FAERS Safety Report 15940901 (Version 2)
Quarter: 2019Q1

REPORT INFORMATION
  Report Type: Spontaneous
  Country: US (occurrence: US)
  Receive Date: 20190208
  Receipt Date: 20190221
  Transmission Date: 20190417
  Serious: Yes (Other)
  Sender: FDA-Public Use
  Company Number: US-ASTRAZENECA-2018SF22198

PATIENT
  Age: 20078 Day
  Sex: Female

DRUGS (21)
  1. CARVEDILOL. [Concomitant]
     Active Substance: CARVEDILOL
     Route: 048
  2. RENVELA [Concomitant]
     Active Substance: SEVELAMER CARBONATE
  3. PREDNISONE. [Concomitant]
     Active Substance: PREDNISONE
  4. BUMETANIDE. [Concomitant]
     Active Substance: BUMETANIDE
  5. METOLAZONE. [Concomitant]
     Active Substance: METOLAZONE
  6. ISORDIL [Concomitant]
     Active Substance: ISOSORBIDE DINITRATE
     Route: 048
  7. LORAZEPAM. [Concomitant]
     Active Substance: LORAZEPAM
     Route: 048
  8. PRAVASTATIN. [Concomitant]
     Active Substance: PRAVASTATIN
     Route: 048
  9. HYDRALAZINE [Concomitant]
     Active Substance: HYDRALAZINE HYDROCHLORIDE
  10. HUMALOG [Concomitant]
     Active Substance: INSULIN LISPRO
     Dosage: 100 UNITS/ML
  11. ACETAMINOPHEN. [Concomitant]
     Active Substance: ACETAMINOPHEN
  12. TIOTROPIUM [Concomitant]
     Active Substance: TIOTROPIUM
  13. PRILOSEC [Suspect]
     Active Substance: OMEPRAZOLE MAGNESIUM
     Route: 048
     Dates: start: 20060101, end: 20111231
  14. ASPIRIN. [Concomitant]
     Active Substance: ASPIRIN
     Route: 048
  15. ALLOPURINOL. [Concomitant]
     Active Substance: ALLOPURINOL
  16. REGLAN [Concomitant]
     Active Substance: METOCLOPRAMIDE HYDROCHLORIDE
     Route: 048
  17. METOCLOPRAMIDE HYDROCHLORIDE. [Concomitant]
     Active Substance: METOCLOPRAMIDE HYDROCHLORIDE
     Route: 048
  18. FUROSEMIDE. [Concomitant]
     Active Substance: FUROSEMIDE
  19. LEVOFLOXACIN. [Concomitant]
     Active Substance: LEVOFLOXACIN
  20. FLUTICASONE. [Concomitant]
     Active Substance: FLUTICASONE
  21. ASCORBIC ACID. [Concomitant]
     Active Substance: ASCORBIC ACID

REACTIONS (7)
  - Chronic kidney disease [Unknown]
  - Nephrogenic anaemia [Unknown]
  - Renal failure [Unknown]
  - Renal injury [Unknown]
  - Hyperparathyroidism secondary [Unknown]
  - End stage renal disease [Unknown]
  - Acute kidney injury [Unknown]

NARRATIVE: CASE EVENT DATE: 20080523
